FAERS Safety Report 23301080 (Version 1)
Quarter: 2023Q4

REPORT INFORMATION
  Report Type: Spontaneous
  Country: GB (occurrence: GB)
  Receive Date: 20231215
  Receipt Date: 20231215
  Transmission Date: 20240109
  Serious: Yes (Death)
  Sender: FDA-Public Use
  Company Number: None

PATIENT
  Age: 82 Year
  Sex: Male
  Weight: 87 kg

DRUGS (6)
  1. AVELUMAB [Suspect]
     Active Substance: AVELUMAB
     Indication: Metastatic carcinoma of the bladder
     Route: 042
     Dates: start: 20231016, end: 20231104
  2. LEVOTHYROXINE [Concomitant]
     Active Substance: LEVOTHYROXINE
     Indication: Product used for unknown indication
  3. ALLOPURINOL [Concomitant]
     Active Substance: ALLOPURINOL
     Indication: Product used for unknown indication
  4. SIMVASTATIN [Concomitant]
     Active Substance: SIMVASTATIN
     Indication: Adverse drug reaction
  5. ASPIRIN [Concomitant]
     Active Substance: ASPIRIN
     Indication: Product used for unknown indication
  6. OMEPRAZOLE TEVA [OMEPRAZOLE SODIUM] [Concomitant]
     Indication: Product used for unknown indication

REACTIONS (6)
  - Death [Fatal]
  - Muscular weakness [Unknown]
  - Nephritis [Unknown]
  - Myositis [Unknown]
  - Myocarditis [Unknown]
  - Hepatitis [Unknown]

NARRATIVE: CASE EVENT DATE: 20231108
